FAERS Safety Report 24894538 (Version 1)
Quarter: 2025Q1

REPORT INFORMATION
  Report Type: Spontaneous
  Country: IN (occurrence: IN)
  Receive Date: 20250128
  Receipt Date: 20250128
  Transmission Date: 20250408
  Serious: Yes (Other)
  Sender: LUPIN
  Company Number: IN-LUPIN LIMITED-2025-00539

PATIENT
  Age: 26 Year
  Sex: Female
  Weight: 35 kg

DRUGS (13)
  1. RIFAMPIN [Suspect]
     Active Substance: RIFAMPIN
     Indication: Tuberculosis
     Route: 065
  2. LINEZOLID [Suspect]
     Active Substance: LINEZOLID
     Indication: Tuberculosis
     Dosage: 600 MILLIGRAM, QD TABLET
     Route: 065
     Dates: start: 20240530
  3. CYCLOSERINE [Suspect]
     Active Substance: CYCLOSERINE
     Indication: Tuberculosis
     Dosage: 500 MILLIGRAM, QD (TABLET)
     Route: 065
     Dates: start: 20240530, end: 20240620
  4. ISONIAZID [Concomitant]
     Active Substance: ISONIAZID
     Indication: Tuberculosis
     Route: 065
  5. PYRAZINAMIDE [Concomitant]
     Active Substance: PYRAZINAMIDE
     Indication: Tuberculosis
     Route: 065
     Dates: start: 20240530
  6. ETHAMBUTOL [Concomitant]
     Active Substance: ETHAMBUTOL HYDROCHLORIDE
     Indication: Tuberculosis
     Route: 065
     Dates: start: 20240530
  7. BEDAQUILINE [Concomitant]
     Active Substance: BEDAQUILINE
     Indication: Tuberculosis
     Dosage: 200 MILLIGRAM, QD, (ONCE IN TWO DAYS IN THE MORNING)
     Route: 065
     Dates: start: 20240530
  8. DELAMANID [Concomitant]
     Active Substance: DELAMANID
     Indication: Tuberculosis
     Dosage: 100 MILLIGRAM, BID
     Route: 065
     Dates: start: 20240530
  9. CLOFAZIMINE [Concomitant]
     Active Substance: CLOFAZIMINE
     Indication: Tuberculosis
     Route: 065
     Dates: start: 20240530
  10. PYRIDOXINE [Concomitant]
     Active Substance: PYRIDOXINE
     Indication: Tuberculosis
     Route: 065
     Dates: start: 20240530
  11. SILDENAFIL [Concomitant]
     Active Substance: SILDENAFIL
     Indication: Tuberculosis
     Dosage: 20 MILLIGRAM, TID
     Route: 065
     Dates: start: 20240530
  12. FERROUS ASCORBATE;FOLIC ACID [Concomitant]
     Indication: Tuberculosis
     Dosage: UNK, QD
     Route: 065
     Dates: start: 20240530
  13. PANTOPRAZOLE [Concomitant]
     Active Substance: PANTOPRAZOLE
     Indication: Tuberculosis
     Dosage: 40 MILLIGRAM, QD
     Route: 065
     Dates: start: 20240530

REACTIONS (3)
  - Drug resistance [Unknown]
  - Substance-induced psychotic disorder [Recovering/Resolving]
  - Off label use [Unknown]

NARRATIVE: CASE EVENT DATE: 20240529
